FAERS Safety Report 6245212-X (Version None)
Quarter: 2009Q2

REPORT INFORMATION
  Report Type: 
  Country: None (occurrence: None)
  Receive Date: 20090625
  Receipt Date: 20090622
  Transmission Date: 20091009
  Serious: Yes (Death)
  Sender: FDA-Public Use
  Company Number: PHEH2009US06508

PATIENT
  Sex: Female

DRUGS (1)
  1. LOTREL [Suspect]
     Dosage: UNK, UNK

REACTIONS (1)
  - COMPLETED SUICIDE [None]
